FAERS Safety Report 5732775-3 (Version None)
Quarter: 2008Q2

REPORT INFORMATION
  Report Type: 
  Country: None (occurrence: None)
  Receive Date: 20080507
  Receipt Date: 20080507
  Transmission Date: 20081010
  Serious: Yes (Death)
  Sender: FDA-Public Use
  Company Number: None

PATIENT
  Sex: Female
  Weight: 45.3597 kg

DRUGS (2)
  1. VINORELBINE [Suspect]
     Indication: BREAST CANCER METASTATIC
     Dosage: 25 MG/M2 D 1,8,15 Q 28 D IV
     Route: 042
     Dates: start: 20080304, end: 20080318
  2. LAPATINIB 1500MG [Suspect]
     Indication: BREAST CANCER METASTATIC
     Dosage: 1500MG DAILY PO
     Route: 048
     Dates: start: 20080304, end: 20080319

REACTIONS (3)
  - DIARRHOEA [None]
  - DISEASE PROGRESSION [None]
  - PERFORMANCE STATUS DECREASED [None]
